FAERS Safety Report 9790919 (Version 2)
Quarter: 2014Q1

REPORT INFORMATION
  Report Type: Spontaneous
  Country: US (occurrence: US)
  Receive Date: 20131231
  Receipt Date: 20140202
  Transmission Date: 20141002
  Serious: No
  Sender: FDA-Public Use
  Company Number: US-009507513-1312USA009027

PATIENT
  Age: 88 Year
  Sex: Female
  Weight: 65.31 kg

DRUGS (2)
  1. OXYTROL FOR WOMEN [Suspect]
     Indication: NOCTURIA
     Dosage: UNK, Q4D
     Route: 062
     Dates: start: 20131120, end: 20131213
  2. AMLODIPINE [Concomitant]
     Indication: HYPERTENSION
     Dosage: UNK, UNKNOWN
     Route: 048

REACTIONS (2)
  - Rash macular [Not Recovered/Not Resolved]
  - Drug ineffective [Unknown]
